FAERS Safety Report 21815914 (Version 1)
Quarter: 2023Q1

REPORT INFORMATION
  Report Type: Spontaneous
  Country: US (occurrence: None)
  Receive Date: 20230103
  Receipt Date: 20230103
  Transmission Date: 20230418
  Serious: No
  Sender: FDA-Public Use
  Company Number: None

PATIENT
  Age: 58 Year
  Sex: Female

DRUGS (1)
  1. ENBREL [Suspect]
     Active Substance: ETANERCEPT
     Indication: Psoriasis
     Dosage: FREQUENCY : TWICE A WEEK;?INJECT 50MG SUBCUTANEOUSLY TWO TIMES A WEEK 72 - 96?HOURS APART FOR 3 MONT
     Route: 058
     Dates: start: 202104

REACTIONS (2)
  - Nasopharyngitis [None]
  - Oropharyngeal pain [None]
